FAERS Safety Report 16006056 (Version 2)
Quarter: 2019Q2

REPORT INFORMATION
  Report Type: Spontaneous
  Country: US (occurrence: US)
  Receive Date: 20190226
  Receipt Date: 20190430
  Transmission Date: 20190711
  Serious: No
  Sender: FDA-Public Use
  Company Number: US-MYLANLABS-2019M1014764

PATIENT
  Age: 69 Year
  Sex: Female
  Weight: 52 kg

DRUGS (1)
  1. GLATIRAMER ACETATE INJECTION [Suspect]
     Active Substance: GLATIRAMER ACETATE
     Indication: MYOPATHY
     Dosage: 40 MILLIGRAM, 3XW
     Route: 058

REACTIONS (1)
  - Drug administered in wrong device [Unknown]

NARRATIVE: CASE EVENT DATE: 201902
